FAERS Safety Report 18822982 (Version 1)
Quarter: 2021Q1

REPORT INFORMATION
  Report Type: Spontaneous
  Country: US (occurrence: US)
  Receive Date: 20210201
  Receipt Date: 20210201
  Transmission Date: 20210419
  Serious: No
  Sender: FDA-Public Use
  Company Number: US-ABBVIE-20K-163-3622780-00

PATIENT
  Age: 72 Year
  Sex: Female
  Weight: 83.91 kg

DRUGS (5)
  1. ACTEMRA [Suspect]
     Active Substance: TOCILIZUMAB
     Indication: RHEUMATOID ARTHRITIS
     Route: 065
  2. PLAQUENIL [Suspect]
     Active Substance: HYDROXYCHLOROQUINE SULFATE
     Indication: RHEUMATOID ARTHRITIS
     Route: 065
  3. METHOTREXATE. [Suspect]
     Active Substance: METHOTREXATE
     Indication: RHEUMATOID ARTHRITIS
     Route: 065
  4. HUMIRA [Suspect]
     Active Substance: ADALIMUMAB
     Indication: RHEUMATOID ARTHRITIS
     Route: 058
  5. XELJANZ XR [Suspect]
     Active Substance: TOFACITINIB CITRATE
     Indication: RHEUMATOID ARTHRITIS
     Route: 048
     Dates: start: 202008

REACTIONS (22)
  - Fatigue [Not Recovered/Not Resolved]
  - Pyrexia [Unknown]
  - Musculoskeletal stiffness [Unknown]
  - Joint swelling [Unknown]
  - Knee arthroplasty [Unknown]
  - COVID-19 [Unknown]
  - Joint stiffness [Unknown]
  - Upper limb fracture [Unknown]
  - Therapeutic product effect decreased [Unknown]
  - Depression [Unknown]
  - Drug ineffective [Unknown]
  - Therapeutic product effect incomplete [Unknown]
  - Joint range of motion decreased [Unknown]
  - Rheumatoid arthritis [Unknown]
  - Mobility decreased [Unknown]
  - Gait disturbance [Unknown]
  - Fear [Not Recovered/Not Resolved]
  - Erythema [Unknown]
  - Swelling [Unknown]
  - Arthralgia [Unknown]
  - Neck pain [Unknown]
  - Pain [Unknown]

NARRATIVE: CASE EVENT DATE: 202009
